FAERS Safety Report 10081968 (Version 2)
Quarter: 2014Q2

REPORT INFORMATION
  Report Type: Spontaneous
  Country: LV (occurrence: LV)
  Receive Date: 20140416
  Receipt Date: 20140417
  Transmission Date: 20141212
  Serious: Yes (Other)
  Sender: FDA-Public Use
  Company Number: LV-GILEAD-2014-0099430

PATIENT
  Age: 28 Year
  Sex: Female

DRUGS (2)
  1. AMBRISENTAN [Suspect]
     Indication: PULMONARY ARTERIAL HYPERTENSION
     Dosage: 5 MG, UNK
     Route: 048
     Dates: start: 201310
  2. AMBRISENTAN [Suspect]
     Dosage: 2.5 MG, QD
     Route: 048
     Dates: start: 201310, end: 201311

REACTIONS (2)
  - Chest discomfort [Recovering/Resolving]
  - Fatigue [Recovering/Resolving]
